FAERS Safety Report 11361980 (Version 1)
Quarter: 2015Q3

REPORT INFORMATION
  Report Type: Spontaneous
  Country: SE (occurrence: SE)
  Receive Date: 20150810
  Receipt Date: 20150810
  Transmission Date: 20151125
  Serious: Yes (Other)
  Sender: FDA-Public Use
  Company Number: SE-TEVA-523377ISR

PATIENT
  Sex: Female

DRUGS (1)
  1. DOXYFERM [Suspect]
     Active Substance: DOXYCYCLINE
     Indication: MORAXELLA INFECTION
     Dosage: 50 MILLIGRAM DAILY;
     Route: 048

REACTIONS (4)
  - Haemorrhage in pregnancy [Unknown]
  - Haemorrhage [Unknown]
  - Premature labour [Unknown]
  - Placenta praevia [Unknown]
